FAERS Safety Report 6309823-5 (Version None)
Quarter: 2009Q3

REPORT INFORMATION
  Report Type: 
  Country: None (occurrence: None)
  Receive Date: 20090814
  Receipt Date: 20090804
  Transmission Date: 20100115
  Serious: Yes (Other)
  Sender: FDA-Public Use
  Company Number: JP-PFIZER INC-2009233496

PATIENT
  Age: 73 Year

DRUGS (8)
  1. GABAPEN [Suspect]
     Indication: PAIN
     Dosage: 400 MG, 1X/DAY
     Dates: start: 20080728, end: 20080814
  2. OXYCONTIN [Suspect]
     Indication: PAIN
     Dosage: FREQUENCY: 2X/DAY,
     Route: 048
     Dates: start: 20080701, end: 20080801
  3. RELIFEN [Concomitant]
     Route: 048
  4. ZYPREXA [Concomitant]
     Route: 048
  5. FERROUS CITRATE [Concomitant]
     Route: 048
  6. TRANEXAMIC ACID [Concomitant]
     Route: 048
  7. MAGNESIUM OXIDE [Concomitant]
     Route: 048
  8. BETAMETHASONE [Concomitant]
     Route: 048

REACTIONS (2)
  - DIZZINESS [None]
  - SOMNOLENCE [None]
